FAERS Safety Report 14869246 (Version 3)
Quarter: 2020Q2

REPORT INFORMATION
  Report Type: Spontaneous
  Country: US (occurrence: US)
  Receive Date: 20180509
  Receipt Date: 20200514
  Transmission Date: 20200713
  Serious: No
  Sender: FDA-Public Use
  Company Number: US-PFIZER INC-2018187154

PATIENT
  Age: 67 Year
  Sex: Female
  Weight: 45 kg

DRUGS (5)
  1. METHYLPREDNISOLONE. [Concomitant]
     Active Substance: METHYLPREDNISOLONE
     Dosage: UNK
  2. XELJANZ [Suspect]
     Active Substance: TOFACITINIB CITRATE
     Dosage: 5 MG, 2X/DAY
     Route: 048
  3. XELJANZ [Suspect]
     Active Substance: TOFACITINIB CITRATE
     Indication: RHEUMATOID ARTHRITIS
     Dosage: 5 MG, UNK
  4. XELJANZ [Suspect]
     Active Substance: TOFACITINIB CITRATE
     Dosage: 5 MG, 2X/DAY
  5. TRAMADOL. [Concomitant]
     Active Substance: TRAMADOL
     Indication: MIGRAINE
     Dosage: UNK, AS NEEDED

REACTIONS (8)
  - Anxiety [Unknown]
  - Pain [Unknown]
  - Blood count abnormal [Unknown]
  - Fall [Unknown]
  - Herpes zoster [Unknown]
  - Joint injury [Unknown]
  - White blood cell count decreased [Unknown]
  - Inflammation [Unknown]
